FAERS Safety Report 8506147-2 (Version None)
Quarter: 2012Q3

REPORT INFORMATION
  Report Type: 
  Country: None (occurrence: None)
  Receive Date: 20120712
  Receipt Date: 20120703
  Transmission Date: 20120928
  Serious: Yes (Hospitalization)
  Sender: FDA-Public Use
  Company Number: NL-ROCHE-1083720

PATIENT
  Sex: Male

DRUGS (3)
  1. CISPLATIN [Suspect]
     Indication: GASTRIC CANCER
     Dosage: CUMULATIVE DOSE IS 118.80MG, DATE OF LAST TREATMENT 26/JUN/2012.
     Route: 042
     Dates: start: 20120223
  2. EPIRUBICIN HYDROCHLORIDE [Suspect]
     Indication: GASTRIC CANCER
     Dosage: CUMULATIVE DOSE IS 394MG, DATE OF LAST TREATMENT 26/JUN/2012.
     Route: 042
     Dates: start: 20120223
  3. XELODA [Suspect]
     Indication: GASTRIC CANCER
     Dosage: DATE OF LAST TREATMENT 26/JUN/2012.
     Route: 048
     Dates: start: 20120223

REACTIONS (1)
  - GASTRIC DILATATION [None]
